FAERS Safety Report 10508255 (Version 11)
Quarter: 2015Q3

REPORT INFORMATION
  Report Type: Spontaneous
  Country: US (occurrence: None)
  Receive Date: 20141007
  Receipt Date: 20150710
  Transmission Date: 20151125
  Serious: Yes (Hospitalization, Other)
  Sender: FDA-Public Use
  Company Number: DSU-2014-114079

PATIENT
  Age: 60 Year
  Sex: Female
  Weight: 97.1 kg

DRUGS (32)
  1. SIMVASTATIN. [Concomitant]
     Active Substance: SIMVASTATIN
  2. CLARITIN   /00917501/ (LORATADINE) [Concomitant]
  3. SPIRIVA HANDIHALER (TIOTROPIUM BROMIDE) [Concomitant]
  4. MAXZIDE (HYDROCHLOROTHIAZIDE, TRIAMTERENE) [Concomitant]
  5. OMEPRAZOLE. [Concomitant]
     Active Substance: OMEPRAZOLE
  6. CLOTRIMAZOLE AND BETAMETHASONE (BETAMETHASONE, CLOTRIMAZOLE) [Concomitant]
  7. CLORAZEPATE (CLORAZEPATE DIPOTASSIUM) [Concomitant]
  8. BENICAR [Suspect]
     Active Substance: OLMESARTAN MEDOXOMIL
     Indication: HYPERTENSION
     Route: 048
     Dates: start: 20090203, end: 20101030
  9. NIFEDIAC CC (NIFEDIPINE) [Concomitant]
  10. VITAMIN B (VITAMIN B COMPLEX) [Concomitant]
  11. CITRACAL + D /01438101/ (CALCIUM CITRATE, ERGOCALCIFEROL) [Concomitant]
  12. B-COMPLEX /00003501/ (CALCIUM PANTOTHENATE, NICOTINAMIDE, PYRIDOXINE HYDROCHLORIDE, RIBOFLAVIN, THIAMINE HYDROCHLORIDE) [Concomitant]
  13. ASTEPRO (AZELASTINE HYDROCHLORIDE) [Concomitant]
  14. SINGULAIR [Concomitant]
     Active Substance: MONTELUKAST SODIUM
  15. ZYRTEC [Concomitant]
     Active Substance: CETIRIZINE HYDROCHLORIDE
  16. XYZAL (LEVOCETIRIZINE DIHYDROCHLORIDE) [Concomitant]
  17. CALTRATE D /00944201/  (CALCIUM CARBONATE, COLECALCIFEROL)??? [Concomitant]
  18. TRIAMTERENE AND HYDROCHLOROTHIAZID (HYDROCHLOROTHIAZIDE, TRIAMTERENE)? [Concomitant]
  19. CELEBREX [Concomitant]
     Active Substance: CELECOXIB
  20. SYMBICORT (BUDESONIDE FORMOTEROL FUMARATE) [Concomitant]
  21. COD LIVER OIL [Concomitant]
     Active Substance: COD LIVER OIL
  22. PROAIR HFA [Concomitant]
     Active Substance: ALBUTEROL SULFATE
  23. ADVAIR DISKUS [Concomitant]
     Active Substance: FLUTICASONE PROPIONATE\SALMETEROL XINAFOATE
  24. PATADAY (OLOPATADINE HYDROCHLORIDE) [Concomitant]
  25. PREDNISONE. [Concomitant]
     Active Substance: PREDNISONE
  26. TRAMADOL. [Concomitant]
     Active Substance: TRAMADOL
  27. AZELASTINE HCL (AZELASTINE HYDROCHLORIDE) [Concomitant]
  28. NIFEDIPINE. [Concomitant]
     Active Substance: NIFEDIPINE
  29. FLONASE [Concomitant]
     Active Substance: FLUTICASONE PROPIONATE
  30. POTASSIUM EFFERVESCENT (POTASSIUM BICARBONATE, POTASSIUM BITARTRATE) [Concomitant]
  31. VITAMIN D3 [Concomitant]
     Active Substance: CHOLECALCIFEROL
  32. DYMISTA (AZELASTINE HYDROCHLORIDE, FLUTICASONE PROPIONATE) [Concomitant]

REACTIONS (38)
  - Uveitis [None]
  - Blood chloride increased [None]
  - Hyperlipidaemia [None]
  - Aspartate aminotransferase increased [None]
  - White blood cell count increased [None]
  - Transaminases increased [None]
  - Hiatus hernia [None]
  - Acute kidney injury [None]
  - Chronic sinusitis [None]
  - Bronchitis chronic [None]
  - Alanine aminotransferase increased [None]
  - Asthenia [None]
  - Large intestine polyp [None]
  - Blood pressure increased [None]
  - Small intestinal bacterial overgrowth [None]
  - Malabsorption [None]
  - Somnolence [None]
  - Carbon dioxide decreased [None]
  - Intestinal villi atrophy [None]
  - Colon adenoma [None]
  - Myalgia [None]
  - Arthralgia [None]
  - Rhinitis [None]
  - Blood albumin increased [None]
  - Urine leukocyte esterase positive [None]
  - Confusional state [None]
  - Viral infection [None]
  - Acquired oesophageal web [None]
  - Gastroenteritis [None]
  - Dizziness [None]
  - Wheezing [None]
  - Blood pressure diastolic decreased [None]
  - Disorientation [None]
  - Enteritis infectious [None]
  - Blood calcium increased [None]
  - Heart rate increased [None]
  - Adenoma benign [None]
  - Chronic gastritis [None]

NARRATIVE: CASE EVENT DATE: 20110301
